FAERS Safety Report 23491168 (Version 1)
Quarter: 2024Q1

REPORT INFORMATION
  Report Type: Report from Study
  Country: US (occurrence: US)
  Receive Date: 20240207
  Receipt Date: 20240207
  Transmission Date: 20240410
  Serious: Yes (Hospitalization)
  Sender: FDA-Public Use
  Company Number: US-Merck Healthcare KGaA-2023467032

PATIENT
  Age: 84 Year
  Sex: Male

DRUGS (1)
  1. REBIF [Suspect]
     Active Substance: INTERFERON BETA-1A
     Indication: Product used for unknown indication
     Dosage: REBIF FIRST SHIP DATE 30-JAN-2023.
     Route: 058

REACTIONS (7)
  - Sepsis [Recovering/Resolving]
  - Loss of personal independence in daily activities [Unknown]
  - Furuncle [Recovering/Resolving]
  - Pustule [Recovering/Resolving]
  - Rash macular [Recovering/Resolving]
  - Memory impairment [Unknown]
  - Ill-defined disorder [Unknown]
